FAERS Safety Report 4383723-2 (Version None)
Quarter: 2004Q2

REPORT INFORMATION
  Report Type: 
  Country: None (occurrence: None)
  Receive Date: 20040608
  Receipt Date: 20031106
  Transmission Date: 20050107
  Serious: Yes (Life-Threatening, Hospitalization, Other)
  Sender: FDA-Public Use
  Company Number: 200314114BCC

PATIENT
  Age: 53 Year
  Sex: Female
  Weight: 63.5036 kg

DRUGS (3)
  1. ALEVE [Suspect]
     Indication: HEADACHE
     Dosage: 220 MG, QD, ORAL
     Route: 048
     Dates: start: 20031104
  2. AMBIEN [Concomitant]
  3. TRANXENE [Concomitant]

REACTIONS (8)
  - ANAPHYLACTIC REACTION [None]
  - BLOOD PRESSURE DECREASED [None]
  - BURNING SENSATION [None]
  - ERYTHEMA [None]
  - HEADACHE [None]
  - LOSS OF CONSCIOUSNESS [None]
  - ORAL DISCOMFORT [None]
  - PULSE ABSENT [None]
